FAERS Safety Report 13277269 (Version 2)
Quarter: 2017Q1

REPORT INFORMATION
  Report Type: Spontaneous
  Country: IT (occurrence: IT)
  Receive Date: 20170228
  Receipt Date: 20170303
  Transmission Date: 20170428
  Serious: Yes (Hospitalization)
  Sender: FDA-Public Use
  Company Number: IT-ASTRAZENECA-2017SE20183

PATIENT
  Age: 16983 Day
  Sex: Female

DRUGS (12)
  1. TEGRETOL [Suspect]
     Active Substance: CARBAMAZEPINE
     Indication: SUICIDE ATTEMPT
     Route: 048
     Dates: start: 20170225
  2. TEGRETOL [Suspect]
     Active Substance: CARBAMAZEPINE
     Indication: SUICIDE ATTEMPT
     Route: 048
     Dates: start: 20170208, end: 20170209
  3. CIPRALEX [Suspect]
     Active Substance: ESCITALOPRAM OXALATE
     Indication: SUICIDE ATTEMPT
     Route: 048
     Dates: start: 20170208, end: 20170209
  4. SEROQUEL [Suspect]
     Active Substance: QUETIAPINE FUMARATE
     Indication: SUICIDE ATTEMPT
     Route: 048
     Dates: start: 20170208, end: 20170209
  5. SEROQUEL [Suspect]
     Active Substance: QUETIAPINE FUMARATE
     Indication: BORDERLINE PERSONALITY DISORDER
     Route: 048
     Dates: end: 20170225
  6. CIPRALEX [Suspect]
     Active Substance: ESCITALOPRAM OXALATE
     Indication: BORDERLINE PERSONALITY DISORDER
     Route: 048
     Dates: start: 20170208, end: 20170209
  7. DEPAKIN [Suspect]
     Active Substance: VALPROATE SODIUM
     Indication: SUICIDE ATTEMPT
     Route: 048
     Dates: start: 20170208, end: 20170209
  8. SEROQUEL [Suspect]
     Active Substance: QUETIAPINE FUMARATE
     Indication: SUICIDE ATTEMPT
     Route: 048
     Dates: end: 20170225
  9. TEGRETOL [Suspect]
     Active Substance: CARBAMAZEPINE
     Indication: PROPHYLAXIS
     Route: 048
     Dates: start: 20170208, end: 20170209
  10. TEGRETOL [Suspect]
     Active Substance: CARBAMAZEPINE
     Indication: PROPHYLAXIS
     Route: 048
     Dates: start: 20170225
  11. SEROQUEL [Suspect]
     Active Substance: QUETIAPINE FUMARATE
     Indication: BORDERLINE PERSONALITY DISORDER
     Route: 048
     Dates: start: 20170208, end: 20170209
  12. DEPAKIN [Suspect]
     Active Substance: VALPROATE SODIUM
     Indication: PROPHYLAXIS
     Route: 048
     Dates: start: 20170208, end: 20170209

REACTIONS (4)
  - Lactic acidosis [Recovered/Resolved]
  - Metabolic disorder [Recovered/Resolved]
  - Neurological decompensation [Recovered/Resolved]
  - Drug abuse [Recovered/Resolved]

NARRATIVE: CASE EVENT DATE: 20170209
